FAERS Safety Report 24836122 (Version 2)
Quarter: 2025Q1

REPORT INFORMATION
  Report Type: Spontaneous
  Country: DE (occurrence: DE)
  Receive Date: 20250113
  Receipt Date: 20250213
  Transmission Date: 20250408
  Serious: Yes (Hospitalization)
  Sender: BOEHRINGER INGELHEIM
  Company Number: DE-BoehringerIngelheim-2025-BI-001631

PATIENT
  Age: 69 Year
  Sex: Female

DRUGS (2)
  1. OFEV [Suspect]
     Active Substance: NINTEDANIB
     Indication: Interstitial lung disease
     Dates: start: 202308, end: 202407
  2. OFEV [Suspect]
     Active Substance: NINTEDANIB
     Indication: Hypersensitivity pneumonitis
     Dates: start: 202407

REACTIONS (3)
  - Duodenal ulcer perforation [Recovered/Resolved]
  - Gastric ulcer haemorrhage [Unknown]
  - Duodenal ulcer perforation [Unknown]

NARRATIVE: CASE EVENT DATE: 20241201
